FAERS Safety Report 9093449 (Version 1)
Quarter: 2013Q1

REPORT INFORMATION
  Report Type: Report from Study
  Country: US (occurrence: US)
  Receive Date: 20130131
  Receipt Date: 20130131
  Transmission Date: 20140127
  Serious: No
  Sender: FDA-Public Use
  Company Number: US-ABBOTT-12P-163-0908613-00

PATIENT
  Age: 55 Year
  Sex: Male

DRUGS (18)
  1. HUMIRA [Suspect]
     Indication: RHEUMATOID ARTHRITIS
     Dates: start: 20111115
  2. METHOTREXATE [Concomitant]
     Indication: RHEUMATOID ARTHRITIS
     Route: 048
  3. AMLODIPINE [Concomitant]
     Indication: HYPERTENSION
     Dosage: DAILY
     Route: 048
  4. LISINOPRIL [Concomitant]
     Indication: HYPERTENSION
     Dosage: DAILY
     Route: 048
  5. TRAMADOL [Concomitant]
     Indication: PAIN
     Route: 048
  6. NABUMETONE [Concomitant]
     Indication: PRODUCT USED FOR UNKNOWN INDICATION
     Route: 048
  7. AMBIEN [Concomitant]
     Indication: INSOMNIA
  8. CLONAZEPAM [Concomitant]
     Indication: ANXIETY
  9. PRILOSEC [Concomitant]
     Indication: DYSPEPSIA
  10. BABY ASPIRIN [Concomitant]
     Indication: ANTICOAGULANT THERAPY
  11. COQ10 [Concomitant]
     Indication: PRODUCT USED FOR UNKNOWN INDICATION
  12. CHROMIUM PICOLINATE [Concomitant]
     Indication: PRODUCT USED FOR UNKNOWN INDICATION
  13. VITAMIN D NOS [Concomitant]
     Indication: PRODUCT USED FOR UNKNOWN INDICATION
  14. WELLBUTRIN [Concomitant]
     Indication: DEPRESSION
  15. WELLBUTRIN [Concomitant]
     Indication: ANXIETY
  16. VOLTAREN [Concomitant]
     Indication: JOINT SWELLING
  17. DOXAZOSIN [Concomitant]
     Indication: BLOOD PRESSURE
  18. CELEBREX [Concomitant]
     Indication: PRODUCT USED FOR UNKNOWN INDICATION

REACTIONS (7)
  - Incorrect dose administered [Not Recovered/Not Resolved]
  - Rheumatoid arthritis [Not Recovered/Not Resolved]
  - Arthralgia [Not Recovered/Not Resolved]
  - Furuncle [Recovered/Resolved]
  - Arthralgia [Not Recovered/Not Resolved]
  - Injection site haemorrhage [Recovered/Resolved]
  - Drug ineffective [Not Recovered/Not Resolved]
